FAERS Safety Report 6745494-1 (Version None)
Quarter: 2010Q2

REPORT INFORMATION
  Report Type: 
  Country: None (occurrence: None)
  Receive Date: 20100528
  Receipt Date: 20100520
  Transmission Date: 20101027
  Serious: Yes (Death, Hospitalization)
  Sender: FDA-Public Use
  Company Number: JP-JNJFOC-20090703644

PATIENT
  Sex: Female
  Weight: 58 kg

DRUGS (13)
  1. DOXORUBICIN HCL [Suspect]
     Indication: OVARIAN CANCER RECURRENT
     Route: 042
  2. DEXAMETHASONE [Concomitant]
  3. HEPARIN [Concomitant]
     Route: 061
  4. ALBUMIN TANNATE [Concomitant]
     Route: 048
  5. BIFIDOBACTERIUM [Concomitant]
     Route: 048
  6. SENNOSIDE [Concomitant]
     Route: 048
  7. WHITE PETROLATUM [Concomitant]
     Indication: DRUG USE FOR UNKNOWN INDICATION
     Route: 061
  8. KETOPROFEN [Concomitant]
     Indication: DRUG USE FOR UNKNOWN INDICATION
     Route: 062
  9. HEPARIN [Concomitant]
     Indication: DRUG USE FOR UNKNOWN INDICATION
     Route: 061
  10. POTASSIUM CHLORIDE [Concomitant]
     Route: 042
  11. GRANISETRON [Concomitant]
     Route: 042
  12. PACETCOOL [Concomitant]
     Route: 042
  13. SAXIZON [Concomitant]
     Route: 042

REACTIONS (3)
  - DEHYDRATION [None]
  - INTESTINAL OBSTRUCTION [None]
  - VOMITING [None]
